FAERS Safety Report 8314571-6 (Version None)
Quarter: 2012Q2

REPORT INFORMATION
  Report Type: 
  Country: None (occurrence: None)
  Receive Date: 20120426
  Receipt Date: 20120413
  Transmission Date: 20120825
  Serious: Yes (Death, Life-Threatening, Hospitalization)
  Sender: FDA-Public Use
  Company Number: DE-CELGENEUS-062-50794-11101017

PATIENT
  Age: 72 Year
  Sex: Male

DRUGS (3)
  1. VIDAZA [Suspect]
  2. VIDAZA [Suspect]
     Indication: ACUTE MYELOID LEUKAEMIA
     Dosage: 150 MG
     Route: 058
     Dates: start: 20090101, end: 20090101
  3. TAZOBACTAM [Concomitant]
     Dosage: 9 GRAM
     Route: 065
     Dates: start: 20081201

REACTIONS (4)
  - SUPRAVENTRICULAR TACHYCARDIA [None]
  - RENAL FAILURE [None]
  - SEPSIS [None]
  - PERICARDIAL EFFUSION [None]
